FAERS Safety Report 16743666 (Version 3)
Quarter: 2019Q4

REPORT INFORMATION
  Report Type: Report from Study
  Country: None (occurrence: FR)
  Receive Date: 20190827
  Receipt Date: 20191213
  Transmission Date: 20200122
  Serious: Yes (Hospitalization, Other)
  Sender: FDA-Public Use
  Company Number: FR-ABBVIE-19K-056-2899431-00

PATIENT
  Sex: Female

DRUGS (1)
  1. DUODOPA [Suspect]
     Active Substance: CARBIDOPA\LEVODOPA
     Indication: PARKINSON^S DISEASE
     Route: 050
     Dates: start: 201610

REACTIONS (8)
  - Agitation [Unknown]
  - Hallucination, visual [Unknown]
  - Epilepsy [Unknown]
  - Hallucination [Unknown]
  - Cerebrovascular accident [Unknown]
  - Neurological symptom [Not Recovered/Not Resolved]
  - Disorientation [Unknown]
  - Anxiety [Unknown]

NARRATIVE: CASE EVENT DATE: 20190821
